FAERS Safety Report 9757465 (Version 1)
Quarter: 2013Q4

REPORT INFORMATION
  Report Type: Spontaneous
  Country: US (occurrence: US)
  Receive Date: 20131215
  Receipt Date: 20131215
  Transmission Date: 20140711
  Serious: No
  Sender: FDA-Public Use
  Company Number: US-009507513-1312USA002826

PATIENT
  Age: 60 Year
  Sex: Male

DRUGS (17)
  1. ZOCOR [Suspect]
     Dosage: 40 MG, QD
     Route: 048
  2. FUROSEMIDE [Suspect]
     Dosage: 40 MG, QD
     Route: 048
  3. PROVENTIL [Suspect]
     Dosage: 1-2 PUFFS EVERY 4 HOURS AS
     Route: 055
  4. PRINIVIL [Suspect]
     Dosage: 5 MG, QD
     Route: 048
  5. CEFUROXIME [Suspect]
     Dosage: 500 MG, Q12H
     Route: 048
  6. ASPIRIN [Concomitant]
     Dosage: 325 MG, QD
     Route: 048
  7. BUSPIRONE HYDROCHLORIDE [Concomitant]
     Dosage: 15 MG, BID
     Route: 048
  8. OLANZAPINE [Concomitant]
     Dosage: 30 MG, HS
     Route: 048
  9. METFORMIN HYDROCHLORIDE [Concomitant]
     Dosage: 500 MG, BID
     Route: 048
  10. TIOTROPIUM BROMIDE [Concomitant]
     Dosage: 1 PUFF EVERY 6 HOURS AS NEEDED
     Route: 048
  11. NICOTINE [Concomitant]
     Dosage: 2 MG, DAILY AS NEEDED
     Route: 048
  12. CLONAZEPAM [Concomitant]
     Dosage: 1 MG, BID
     Route: 048
  13. ESOMEPRAZOLE SODIUM [Concomitant]
     Dosage: 40 MG, QD
     Route: 048
  14. METOPROLOL TARTRATE [Concomitant]
     Dosage: 25 MG, BID
     Route: 048
  15. METHADONE HYDROCHLORIDE [Concomitant]
     Dosage: 50 MG, QD
     Route: 048
  16. CHLORPROMAZINE HYDROCHLORIDE [Concomitant]
     Dosage: 10 MG, TID
     Route: 048
  17. COUMADIN [Concomitant]
     Dosage: 3 MG, QD
     Route: 048

REACTIONS (1)
  - Vomiting [Unknown]
